FAERS Safety Report 8801164 (Version 1)
Quarter: 2012Q4

REPORT INFORMATION
  Report Type: 
  Country: FR (occurrence: FR)
  Receive Date: 20120921
  Receipt Date: 20120921
  Transmission Date: 20130627
  Serious: Yes (Hospitalization)
  Sender: FDA-Public Use
  Company Number: FR-ALEXION PHARMACEUTICALS INC.-A201201684

PATIENT
  Sex: Female

DRUGS (7)
  1. SOLIRIS 300MG [Suspect]
     Indication: HAEMOLYTIC URAEMIC SYNDROME
     Dosage: UNK
     Route: 042
     Dates: start: 20120405
  2. SOLIRIS 300MG [Suspect]
     Dosage: UNK
     Route: 042
     Dates: end: 20120618
  3. KEPPRA [Suspect]
     Indication: CONVULSION
     Dosage: 1000 mg, qd
     Route: 048
     Dates: start: 20120404
  4. ORACILLINE [Suspect]
     Dosage: 1000000 Ul, bid
     Route: 048
     Dates: start: 20120405, end: 20120809
  5. RAMIPRIL [Concomitant]
     Dosage: UNK
     Dates: start: 201204, end: 201206
  6. OMEPRAZOLE [Concomitant]
  7. FORTIMEL [Concomitant]
     Dosage: 1 Tab/day

REACTIONS (1)
  - Aplastic anaemia [Not Recovered/Not Resolved]
